FAERS Safety Report 8311429-3 (Version None)
Quarter: 2012Q2

REPORT INFORMATION
  Report Type: 
  Country: None (occurrence: None)
  Receive Date: 20120423
  Receipt Date: 20120410
  Transmission Date: 20120825
  Serious: Yes (Hospitalization, Other)
  Sender: FDA-Public Use
  Company Number: US-JNJFOC-20120405910

PATIENT
  Age: 62 Year
  Sex: Male

DRUGS (1)
  1. DECITABINE [Suspect]
     Indication: MYELOFIBROSIS
     Dosage: IN 1 CYCLICAL, INTRAVENOUS
     Route: 042

REACTIONS (3)
  - LUNG CONSOLIDATION [None]
  - PANCYTOPENIA [None]
  - ORGANISING PNEUMONIA [None]
